FAERS Safety Report 8985957 (Version 8)
Quarter: 2013Q4

REPORT INFORMATION
  Report Type: Report from Study
  Country: US (occurrence: US)
  Receive Date: 20121226
  Receipt Date: 20131223
  Transmission Date: 20140711
  Serious: Yes (Hospitalization, Other)
  Sender: FDA-Public Use
  Company Number: US-SANOFI-AVENTIS-2012SA091066

PATIENT
  Age: 47 Year
  Sex: Female

DRUGS (3)
  1. AUBAGIO [Suspect]
     Indication: MULTIPLE SCLEROSIS
     Route: 048
     Dates: start: 201301, end: 201302
  2. AUBAGIO [Suspect]
     Indication: MULTIPLE SCLEROSIS
     Route: 048
     Dates: start: 201305
  3. PERCOCET [Concomitant]
     Indication: PAIN

REACTIONS (17)
  - Pulmonary oedema [Unknown]
  - Transient ischaemic attack [Unknown]
  - Dehydration [Unknown]
  - Vomiting [Unknown]
  - Nephrolithiasis [Unknown]
  - Pyrexia [Unknown]
  - Nausea [Unknown]
  - Muscular weakness [Unknown]
  - Insomnia [Unknown]
  - Agitation [Unknown]
  - Affect lability [Unknown]
  - Fall [Unknown]
  - Constipation [Not Recovered/Not Resolved]
  - Abdominal distension [Not Recovered/Not Resolved]
  - Hepatic enzyme increased [Not Recovered/Not Resolved]
  - Diarrhoea [Not Recovered/Not Resolved]
  - Upper respiratory tract infection [Unknown]
